FAERS Safety Report 24854802 (Version 1)
Quarter: 2025Q1

REPORT INFORMATION
  Report Type: Spontaneous
  Country: SE (occurrence: SE)
  Receive Date: 20250117
  Receipt Date: 20250117
  Transmission Date: 20250409
  Serious: No
  Sender: ALKEM
  Company Number: SE-ALKEM LABORATORIES LIMITED-SE-ALKEM-2024-12863

PATIENT
  Age: 153 Month

DRUGS (2)
  1. VIGABATRIN [Suspect]
     Active Substance: VIGABATRIN
     Indication: Tuberous sclerosis complex
     Route: 065
  2. VIGABATRIN [Suspect]
     Active Substance: VIGABATRIN
     Route: 065

REACTIONS (2)
  - Retinal disorder [Unknown]
  - Therapy partial responder [Unknown]
